FAERS Safety Report 10733779 (Version 4)
Quarter: 2015Q1

REPORT INFORMATION
  Report Type: Spontaneous
  Country: IL (occurrence: IL)
  Receive Date: 20150123
  Receipt Date: 20150209
  Transmission Date: 20150721
  Serious: Yes (Hospitalization, Other)
  Sender: FDA-Public Use
  Company Number: IL-PFIZER INC-2014080133

PATIENT
  Age: 61 Year
  Sex: Male

DRUGS (9)
  1. AMLOW [Concomitant]
  2. XATRAL [Concomitant]
     Active Substance: ALFUZOSIN
  3. VASCASE PLUS [Concomitant]
  4. NEXIUM [Concomitant]
     Active Substance: ESOMEPRAZOLE MAGNESIUM
  5. SUTENT [Suspect]
     Active Substance: SUNITINIB MALATE
     Dosage: 50 MG, ALTERNATE DAY
  6. NORMITEN [Concomitant]
     Active Substance: ATENOLOL
  7. SINVACOR [Concomitant]
     Active Substance: SIMVASTATIN
  8. ELTROXIN [Concomitant]
     Active Substance: LEVOTHYROXINE
  9. SUTENT [Suspect]
     Active Substance: SUNITINIB MALATE
     Indication: RENAL CELL CARCINOMA
     Dosage: 50 MG, 1X/DAY, CYCLE NUMBER AND CUMULATIVE DOSE HARD TO ESTIMATE
     Route: 048
     Dates: start: 20130201

REACTIONS (21)
  - Balance disorder [Not Recovered/Not Resolved]
  - Disease progression [Unknown]
  - Proctalgia [Unknown]
  - Dry mouth [Recovered/Resolved]
  - Renal cell carcinoma [Unknown]
  - Speech disorder [Not Recovered/Not Resolved]
  - Blood pressure increased [Not Recovered/Not Resolved]
  - Ageusia [Not Recovered/Not Resolved]
  - Asthenia [Not Recovered/Not Resolved]
  - Dry skin [Recovering/Resolving]
  - Joint swelling [Unknown]
  - Blood thyroid stimulating hormone increased [Not Recovered/Not Resolved]
  - Diarrhoea [Unknown]
  - Dyspepsia [Recovering/Resolving]
  - Pain [Recovered/Resolved]
  - Protein urine present [Not Recovered/Not Resolved]
  - Haematochezia [Recovered/Resolved]
  - Decreased appetite [Recovering/Resolving]
  - Skin haemorrhage [Recovered/Resolved]
  - Constipation [Not Recovered/Not Resolved]
  - Feeling abnormal [Unknown]

NARRATIVE: CASE EVENT DATE: 201404
